FAERS Safety Report 7146414-0 (Version None)
Quarter: 2010Q4

REPORT INFORMATION
  Report Type: 
  Country: None (occurrence: None)
  Receive Date: 20101208
  Receipt Date: 20100721
  Transmission Date: 20110411
  Serious: No
  Sender: FDA-Public Use
  Company Number: US-BRISTOL-MYERS SQUIBB COMPANY-15203268

PATIENT
  Sex: Female

DRUGS (2)
  1. PRAVASTATIN SODIUM [Suspect]
     Route: 065
  2. LIPITOR [Suspect]
     Dosage: REDUCED TO 20MG, ON 01-JUL-2010 WAS TAKING 10 MG, HAD BEEN CUTTING 20 MG TABS IN HALF.

REACTIONS (1)
  - ILL-DEFINED DISORDER [None]
